FAERS Safety Report 23294046 (Version 1)
Quarter: 2023Q4

REPORT INFORMATION
  Report Type: Spontaneous
  Country: US (occurrence: US)
  Receive Date: 20231213
  Receipt Date: 20231213
  Transmission Date: 20240110
  Serious: Yes (Other)
  Sender: FDA-Public Use
  Company Number: US-BRISTOL-MYERS SQUIBB COMPANY-2023-179997

PATIENT
  Age: 69 Year
  Sex: Female
  Weight: 50.8 kg

DRUGS (1)
  1. POMALYST [Suspect]
     Active Substance: POMALIDOMIDE
     Indication: Plasma cell myeloma
     Route: 048

REACTIONS (4)
  - Pulmonary oedema [Unknown]
  - Peripheral swelling [Unknown]
  - Emotional distress [Unknown]
  - Nausea [Unknown]
